FAERS Safety Report 7642394-X (Version None)
Quarter: 2011Q3

REPORT INFORMATION
  Report Type: 
  Country: None (occurrence: None)
  Receive Date: 20110728
  Receipt Date: 20100607
  Transmission Date: 20111222
  Serious: No
  Sender: FDA-Public Use
  Company Number: US-MYLANLABS-2010S1010267

PATIENT
  Sex: Female
  Weight: 60.33 kg

DRUGS (1)
  1. LEVOTHYROXINE SODIUM [Suspect]
     Indication: HYPOTHYROIDISM
     Route: 048
     Dates: start: 20040101

REACTIONS (4)
  - SWELLING FACE [None]
  - OEDEMA PERIPHERAL [None]
  - JOINT SWELLING [None]
  - FLUID RETENTION [None]
